FAERS Safety Report 18013229 (Version 3)
Quarter: 2020Q4

REPORT INFORMATION
  Report Type: Spontaneous
  Country: US (occurrence: US)
  Receive Date: 20200713
  Receipt Date: 20201007
  Transmission Date: 20210113
  Serious: No
  Sender: FDA-Public Use
  Company Number: US-PFIZER INC-2019133661

PATIENT
  Age: 62 Year
  Sex: Female
  Weight: 88 kg

DRUGS (3)
  1. LYRICA [Suspect]
     Active Substance: PREGABALIN
     Indication: SEIZURE
     Dosage: 300 MG, 2X/DAY
     Route: 048
     Dates: start: 20190305
  2. LYRICA [Suspect]
     Active Substance: PREGABALIN
     Indication: FIBROMYALGIA
  3. LYRICA [Suspect]
     Active Substance: PREGABALIN
     Indication: BRAIN NEOPLASM

REACTIONS (4)
  - Dysphemia [Unknown]
  - Cough [Unknown]
  - Retching [Unknown]
  - Pharyngeal disorder [Unknown]
